FAERS Safety Report 4960526-9 (Version None)
Quarter: 2006Q1

REPORT INFORMATION
  Report Type: 
  Country: None (occurrence: None)
  Receive Date: 20060329
  Receipt Date: 20060316
  Transmission Date: 20060701
  Serious: Yes (Hospitalization, Other)
  Sender: FDA-Public Use
  Company Number: 2006AL000739

PATIENT
  Age: 17 Year
  Sex: Female

DRUGS (4)
  1. LORAZEPAM [Suspect]
  2. CLOZAPINE [Suspect]
  3. VALPROIC ACID [Concomitant]
  4. LITHIUM [Concomitant]

REACTIONS (10)
  - ASCITES [None]
  - CATATONIA [None]
  - CONFUSIONAL STATE [None]
  - EOSINOPHILIA [None]
  - HEPATIC ENZYME INCREASED [None]
  - LETHARGY [None]
  - MUSCLE RIGIDITY [None]
  - MYALGIA [None]
  - PLEURAL EFFUSION [None]
  - PYREXIA [None]
